FAERS Safety Report 23495051 (Version 9)
Quarter: 2024Q3

REPORT INFORMATION
  Report Type: Spontaneous
  Country: US (occurrence: US)
  Receive Date: 20240207
  Receipt Date: 20240930
  Transmission Date: 20241017
  Serious: Yes (Other)
  Sender: PFIZER
  Company Number: US-PFIZER INC-202300360871

PATIENT
  Age: 70 Year
  Sex: Female
  Weight: 113.4 kg

DRUGS (7)
  1. SOMAVERT [Suspect]
     Active Substance: PEGVISOMANT
     Indication: Gigantism
     Dosage: 15 MG
  2. SOMAVERT [Suspect]
     Active Substance: PEGVISOMANT
     Indication: Acromegaly
     Dosage: EVERYDAY
     Route: 058
  3. SOMAVERT [Suspect]
     Active Substance: PEGVISOMANT
     Indication: Blood growth hormone
     Dosage: 20 MG/VIAL
     Route: 058
  4. SOMAVERT [Suspect]
     Active Substance: PEGVISOMANT
     Dosage: UNK
     Dates: start: 20240214, end: 202402
  5. LEVOTHYROXINE [Concomitant]
     Active Substance: LEVOTHYROXINE\LEVOTHYROXINE SODIUM
     Indication: Hypothyroidism
     Dosage: 125MCG 1/6 DAYS II/1 DAY/1 WEEK
  6. CABERGOLINE [Concomitant]
     Active Substance: CABERGOLINE
     Indication: Acromegaly
     Dosage: 0.5 MG II TABS/2X3/WEEK
  7. WELLBUTRIN [Concomitant]
     Active Substance: BUPROPION HYDROCHLORIDE
     Indication: Depression
     Dosage: UNK

REACTIONS (9)
  - Injection site cellulitis [Recovered/Resolved]
  - Injection site pruritus [Unknown]
  - Injection site erythema [Unknown]
  - Injection site warmth [Unknown]
  - Injection site induration [Unknown]
  - Rash [Unknown]
  - Hypersensitivity [Unknown]
  - Malaise [Unknown]
  - Needle issue [Unknown]
